FAERS Safety Report 6308089-X (Version None)
Quarter: 2009Q3

REPORT INFORMATION
  Report Type: 
  Country: None (occurrence: None)
  Receive Date: 20090810
  Receipt Date: 20090803
  Transmission Date: 20100115
  Serious: Yes (Hospitalization)
  Sender: FDA-Public Use
  Company Number: CIP09002027

PATIENT
  Age: 73 Year
  Sex: Female

DRUGS (14)
  1. ACTONEL [Suspect]
     Dosage: 150 MG, 1 /MONTH, ORAL
     Route: 048
     Dates: start: 20090514
  2. SPIRIVA (TIOTROPIUM BROMIDE) INHALER [Concomitant]
  3. PHENOBARBITAL TAB [Concomitant]
  4. SINGULAIR /01362601/ (MONTELUKAST) [Concomitant]
  5. ZYRTEC [Concomitant]
  6. CLONIDINE [Concomitant]
  7. OXYGEN (OXYGEN) [Concomitant]
  8. VIVAGLOBIN (IMMUNOGLOBULIN) [Concomitant]
  9. DIOVAN [Concomitant]
  10. NORVASC [Concomitant]
  11. PREMARIN [Concomitant]
  12. OMEPRAZOLE [Concomitant]
  13. RANITIDINE [Concomitant]
  14. VISTARIL /00058402/ (HYDROXYZINE HYDROCHLORIDE) [Concomitant]

REACTIONS (8)
  - BLOOD PRESSURE INCREASED [None]
  - DYSPNOEA [None]
  - FREQUENT BOWEL MOVEMENTS [None]
  - INCORRECT DOSE ADMINISTERED [None]
  - MUSCLE SPASMS [None]
  - MUSCULOSKELETAL PAIN [None]
  - NAUSEA [None]
  - POLLAKIURIA [None]
